FAERS Safety Report 17959660 (Version 1)
Quarter: 2020Q2

REPORT INFORMATION
  Report Type: Spontaneous
  Country: US (occurrence: US)
  Receive Date: 20200629
  Receipt Date: 20200629
  Transmission Date: 20200714
  Serious: No
  Sender: FDA-Public Use
  Company Number: US-SOMERSET-2020-US-000226

PATIENT
  Sex: Female

DRUGS (1)
  1. TOBRAMYCIN OPHTHALMIC SOLUTION USP, 0.3% [Suspect]
     Active Substance: TOBRAMYCIN
     Dosage: 1 DROP 4 X DAY
     Dates: start: 20200620, end: 20200626

REACTIONS (3)
  - Drug ineffective [Unknown]
  - Ocular hyperaemia [Unknown]
  - Eye pain [Unknown]

NARRATIVE: CASE EVENT DATE: 20200620
